FAERS Safety Report 20994012 (Version 1)
Quarter: 2022Q2

REPORT INFORMATION
  Report Type: Spontaneous
  Country: US (occurrence: None)
  Receive Date: 20220622
  Receipt Date: 20220622
  Transmission Date: 20220721
  Serious: No
  Sender: FDA-Public Use
  Company Number: None

PATIENT
  Age: 70 Year
  Sex: Female
  Weight: 74.39 kg

DRUGS (10)
  1. CAPECITABINE [Suspect]
     Active Substance: CAPECITABINE
     Indication: Breast cancer female
     Dosage: OTHER FREQUENCY :2 WEEKS ON,  1 WEEK OFF?
     Route: 048
  2. BIOTIN [Concomitant]
  3. COENZYME Q-10 [Concomitant]
  4. GLUCOSAMINE [Concomitant]
  5. LEVOTHYROXINE SODIUM [Concomitant]
  6. LIDOCAINE-PRILOCAINE [Concomitant]
  7. PRESERVISION ARED [Concomitant]
  8. VITAMIN B12 [Concomitant]
  9. VITAMIN C [Concomitant]
  10. VITAMIN D3 [Concomitant]

REACTIONS (1)
  - Palmar-plantar erythrodysaesthesia syndrome [None]
